FAERS Safety Report 14494022 (Version 2)
Quarter: 2018Q4

REPORT INFORMATION
  Report Type: Spontaneous
  Country: JP (occurrence: JP)
  Receive Date: 20180206
  Receipt Date: 20181018
  Transmission Date: 20190204
  Serious: Yes (Other)
  Sender: FDA-Public Use
  Company Number: JP-PFIZER INC-2018050077

PATIENT
  Age: 54 Year
  Sex: Male

DRUGS (1)
  1. ADRIACIN [Suspect]
     Active Substance: DOXORUBICIN HYDROCHLORIDE
     Dosage: UNK
     Route: 065

REACTIONS (3)
  - Mitral valve incompetence [Recovering/Resolving]
  - Cardiomyopathy [Unknown]
  - Cardiac failure [Unknown]
